FAERS Safety Report 5156744-X (Version None)
Quarter: 2006Q4

REPORT INFORMATION
  Report Type: 
  Country: None (occurrence: None)
  Receive Date: 20061122
  Receipt Date: 20061114
  Transmission Date: 20070319
  Serious: Yes (Disabling)
  Sender: FDA-Public Use
  Company Number: JP-MERCK-0611USA05228

PATIENT
  Age: 72 Year
  Sex: Female

DRUGS (6)
  1. PEPCID RPD [Suspect]
     Route: 048
  2. AMBENONIUM CHLORIDE [Suspect]
     Indication: MYASTHENIA GRAVIS
     Route: 048
  3. PREDNISOLONE [Suspect]
     Indication: MYASTHENIA GRAVIS
     Route: 048
     Dates: start: 20050619, end: 20050706
  4. PREDNISOLONE [Suspect]
     Route: 048
     Dates: end: 20060112
  5. TACROLIMUS [Suspect]
     Indication: MYASTHENIA GRAVIS
     Route: 048
     Dates: start: 20050716, end: 20050829
  6. METHYLPREDNISOLONE [Concomitant]
     Indication: MYASTHENIA GRAVIS
     Route: 042
     Dates: start: 20050706, end: 20050708

REACTIONS (1)
  - DEEP VEIN THROMBOSIS [None]
